FAERS Safety Report 4433578-2 (Version None)
Quarter: 2004Q3

REPORT INFORMATION
  Report Type: 
  Country: None (occurrence: None)
  Receive Date: 20040825
  Receipt Date: 20040825
  Transmission Date: 20050211
  Serious: Yes (Other)
  Sender: FDA-Public Use
  Company Number: None

PATIENT
  Age: 26 Year
  Sex: Male

DRUGS (3)
  1. DONNATAL [Suspect]
     Indication: CHEST PAIN
     Dosage: PO-ONE TIME
     Route: 048
  2. LIDOCAINE [Suspect]
     Indication: CHEST PAIN
     Dosage: PO-ONE TIME
     Route: 048
  3. MYLANTA [Suspect]
     Indication: CHEST PAIN
     Dosage: PO-ONE TIME
     Route: 048

REACTIONS (4)
  - DIZZINESS [None]
  - DYSSTASIA [None]
  - DYSTONIA [None]
  - NYSTAGMUS [None]
